FAERS Safety Report 17626014 (Version 1)
Quarter: 2020Q2

REPORT INFORMATION
  Report Type: Spontaneous
  Country: US (occurrence: US)
  Receive Date: 20200404
  Receipt Date: 20200404
  Transmission Date: 20200713
  Serious: No
  Sender: FDA-Public Use
  Company Number: US-GALDERMA-US19076184

PATIENT
  Age: 25 Year
  Sex: Female

DRUGS (6)
  1. PROACTIV MD ADAPALENE ACNE TREATMENT [Suspect]
     Active Substance: ADAPALENE
     Indication: MILIA
     Dosage: 0.1%
     Route: 061
     Dates: start: 20190823
  2. PROACTIV GREEN TEA MOISTURIZER [Concomitant]
     Active Substance: COSMETICS
     Indication: MILIA
     Route: 061
     Dates: start: 20190823
  3. PROACTIV REDNESS RELIEF SERUM [Concomitant]
     Indication: MILIA
     Route: 061
     Dates: start: 20190823
  4. PROACTIV DEEP CLEANSING WASH [Concomitant]
     Active Substance: SALICYLIC ACID
     Indication: MILIA
     Route: 061
     Dates: start: 20190823
  5. PROACTIV MD DEEP CLEANSING FACE WASH [Concomitant]
     Active Substance: COSMETICS
     Indication: MILIA
     Route: 061
     Dates: start: 20190823
  6. PROACTIV MD DAILY OIL CONTROL SPF 30 [Suspect]
     Active Substance: AVOBENZONE\OCTISALATE\OCTOCRYLENE
     Indication: MILIA
     Route: 061
     Dates: start: 20190823

REACTIONS (6)
  - Skin irritation [Not Recovered/Not Resolved]
  - Skin exfoliation [Not Recovered/Not Resolved]
  - Drug ineffective [Not Recovered/Not Resolved]
  - Product use in unapproved indication [Recovered/Resolved]
  - Sensitive skin [Not Recovered/Not Resolved]
  - Condition aggravated [Not Recovered/Not Resolved]

NARRATIVE: CASE EVENT DATE: 20190823
